FAERS Safety Report 18874535 (Version 2)
Quarter: 2021Q1

REPORT INFORMATION
  Report Type: Report from Study
  Country: None (occurrence: US)
  Receive Date: 20210211
  Receipt Date: 20210225
  Transmission Date: 20210420
  Serious: Yes (Hospitalization, Other)
  Sender: FDA-Public Use
  Company Number: US-ABBVIE-21K-163-3765753-00

PATIENT
  Age: 32 Year
  Sex: Female

DRUGS (2)
  1. IMBRUVICA [Suspect]
     Active Substance: IBRUTINIB
     Indication: NON-HODGKIN^S LYMPHOMA
     Route: 048
     Dates: start: 20210202, end: 202102
  2. IMBRUVICA [Suspect]
     Active Substance: IBRUTINIB
     Route: 048
     Dates: start: 202102

REACTIONS (4)
  - Abnormal behaviour [Recovering/Resolving]
  - Eating disorder [Recovering/Resolving]
  - Bipolar disorder [Recovering/Resolving]
  - Brain neoplasm malignant [Recovering/Resolving]

NARRATIVE: CASE EVENT DATE: 202102
